FAERS Safety Report 8684105 (Version 2)
Quarter: 2012Q4

REPORT INFORMATION
  Report Type: 
  Country: FR (occurrence: FR)
  Receive Date: 20120726
  Receipt Date: 20121206
  Transmission Date: 20130627
  Serious: Yes (Hospitalization, Other)
  Sender: FDA-Public Use
  Company Number: FR-ELI_LILLY_AND_COMPANY-FR201207005775

PATIENT
  Age: 64 Year
  Sex: Male

DRUGS (11)
  1. ALIMTA [Suspect]
     Indication: LUNG ADENOCARCINOMA METASTATIC
     Dosage: 1000 mg
     Route: 042
     Dates: start: 20111205, end: 20120208
  2. ALIMTA [Suspect]
     Dosage: 800 mg, UNK
     Dates: start: 20120308
  3. CISPLATIN [Concomitant]
     Dosage: 150 mg, UNK
     Dates: start: 20111205, end: 20111226
  4. GLUCOPHAGE [Concomitant]
  5. AMAREL [Concomitant]
  6. LOXEN [Concomitant]
  7. SPECIAFOLDINE [Concomitant]
  8. NISIS [Concomitant]
  9. PLAVIX [Concomitant]
  10. TAHOR [Concomitant]
  11. PARIET [Concomitant]

REACTIONS (8)
  - Acute respiratory distress syndrome [Unknown]
  - Lung infection [Recovered/Resolved]
  - Pleural effusion [Unknown]
  - Acute respiratory failure [Recovered/Resolved]
  - Interstitial lung disease [Recovered/Resolved]
  - Febrile neutropenia [Unknown]
  - Anaemia [Unknown]
  - Septic shock [Unknown]
